FAERS Safety Report 16239650 (Version 2)
Quarter: 2025Q3

REPORT INFORMATION
  Report Type: Spontaneous
  Country: EU (occurrence: EU)
  Receive Date: 20190425
  Receipt Date: 20250716
  Transmission Date: 20251020
  Serious: Yes (Hospitalization)
  Sender: ALEXION PHARMACEUTICALS
  Company Number: None

PATIENT
  Sex: Male

DRUGS (6)
  1. SEROQUEL [Suspect]
     Active Substance: QUETIAPINE FUMARATE
     Indication: Suicide attempt
  2. BUCLIZINE HYDROCHLORIDE [Suspect]
     Active Substance: BUCLIZINE HYDROCHLORIDE
     Indication: Suicide attempt
  3. TRIMEPRAZINE [Suspect]
     Active Substance: TRIMEPRAZINE
     Indication: Suicide attempt
     Dates: start: 20141026, end: 20141026
  4. ZOLOFT [Suspect]
     Active Substance: SERTRALINE HYDROCHLORIDE
     Indication: Suicide attempt
     Dates: start: 20141026, end: 20141026
  5. LOPERAMIDE [Suspect]
     Active Substance: LOPERAMIDE
     Indication: Suicide attempt
  6. PROPIOMAZINE [Suspect]
     Active Substance: PROPIOMAZINE
     Indication: Suicide attempt
     Route: 065

REACTIONS (11)
  - Intentional overdose [Unknown]
  - Irregular breathing [Unknown]
  - Intentional self-injury [Unknown]
  - Oxygen saturation decreased [Unknown]
  - Electrocardiogram QRS complex prolonged [Unknown]
  - Depressed level of consciousness [Recovering/Resolving]
  - Suicidal ideation [Unknown]
  - Consciousness fluctuating [Recovering/Resolving]
  - Pyrexia [Unknown]
  - Respiratory rate decreased [Recovering/Resolving]
  - Suicide attempt [Unknown]

NARRATIVE: CASE EVENT DATE: 20141026
